FAERS Safety Report 7987225-3 (Version None)
Quarter: 2011Q4

REPORT INFORMATION
  Report Type: 
  Country: None (occurrence: None)
  Receive Date: 20111216
  Receipt Date: 20111205
  Transmission Date: 20120403
  Serious: Yes (Other)
  Sender: FDA-Public Use
  Company Number: US-BRISTOL-MYERS SQUIBB COMPANY-16274490

PATIENT
  Age: 4 Decade
  Sex: Female

DRUGS (2)
  1. TRUVADA [Suspect]
     Indication: HIV INFECTION
  2. REYATAZ [Suspect]
     Indication: HIV INFECTION

REACTIONS (7)
  - HYPERTENSION [None]
  - DIABETES MELLITUS [None]
  - ANXIETY [None]
  - OBESITY [None]
  - DYSLIPIDAEMIA [None]
  - VITAMIN D DEFICIENCY [None]
  - HYPERTHYROIDISM [None]
